FAERS Safety Report 21856356 (Version 1)
Quarter: 2023Q1

REPORT INFORMATION
  Report Type: Spontaneous
  Country: US (occurrence: US)
  Receive Date: 20230112
  Receipt Date: 20230112
  Transmission Date: 20230418
  Serious: No
  Sender: FDA-Public Use
  Company Number: US-BAUSCHBL-2023BNL000137

PATIENT
  Age: 67 Year
  Sex: Female
  Weight: 69.008 kg

DRUGS (2)
  1. LATANOPROST [Suspect]
     Active Substance: LATANOPROST
     Indication: Intraocular pressure test
     Dosage: DAILY ONCE AT NIGHT
     Route: 047
     Dates: start: 202206, end: 202212
  2. LATANOPROST [Suspect]
     Active Substance: LATANOPROST
     Route: 047

REACTIONS (3)
  - Product delivery mechanism issue [Unknown]
  - Wrong dose [Unknown]
  - Drug ineffective [Unknown]
